FAERS Safety Report 7877053-1 (Version None)
Quarter: 2011Q4

REPORT INFORMATION
  Report Type: 
  Country: None (occurrence: None)
  Receive Date: 20111031
  Receipt Date: 20110829
  Transmission Date: 20120403
  Serious: No
  Sender: FDA-Public Use
  Company Number: US-ABBOTT-11P-163-0851082-00

PATIENT
  Sex: Male

DRUGS (13)
  1. LYRICA [Concomitant]
     Indication: PAIN
  2. LISINOPRIL [Concomitant]
     Indication: HYPERTENSION
  3. BENEFIBER [Concomitant]
     Indication: CONSTIPATION PROPHYLAXIS
  4. NEXIUM [Concomitant]
     Indication: GASTROOESOPHAGEAL REFLUX DISEASE
  5. WELLBUTRIN SR [Concomitant]
     Indication: PRODUCT USED FOR UNKNOWN INDICATION
  6. CREON [Suspect]
     Indication: PANCREATIC INSUFFICIENCY
     Dosage: 18-21 CAPSULES PER DAY
  7. MS CONTIN [Concomitant]
     Indication: PANCREATITIS
  8. LYRICA [Concomitant]
     Indication: PANCREATITIS
  9. MULTI-VITAMINS [Concomitant]
     Indication: VITAMIN SUPPLEMENTATION
  10. OXYCODONE HCL [Concomitant]
     Indication: PAIN
  11. OXYCODONE HCL [Concomitant]
     Indication: PANCREATITIS
  12. MS CONTIN [Concomitant]
     Indication: PAIN
  13. COLACE [Concomitant]
     Indication: CONSTIPATION PROPHYLAXIS

REACTIONS (2)
  - INCREASED APPETITE [None]
  - WEIGHT INCREASED [None]
